FAERS Safety Report 16720349 (Version 1)
Quarter: 2019Q3

REPORT INFORMATION
  Report Type: Spontaneous
  Country: BR (occurrence: BR)
  Receive Date: 20190820
  Receipt Date: 20190820
  Transmission Date: 20191005
  Serious: Yes (Other)
  Sender: FDA-Public Use
  Company Number: BR-PFIZER INC-2019356668

PATIENT
  Age: 65 Year
  Sex: Female

DRUGS (1)
  1. XALATAN [Suspect]
     Active Substance: LATANOPROST
     Indication: GLAUCOMA
     Dosage: 2 GTT, 2X/DAY (1 DROP ON EACH EYE TWO TIMES A DAY)
     Route: 047
     Dates: start: 2018

REACTIONS (2)
  - Cataract [Unknown]
  - Overdose [Unknown]

NARRATIVE: CASE EVENT DATE: 2018
